FAERS Safety Report 10240288 (Version 1)
Quarter: 2014Q2

REPORT INFORMATION
  Report Type: Report from Study
  Country: AU (occurrence: AU)
  Receive Date: 20140617
  Receipt Date: 20140617
  Transmission Date: 20141212
  Serious: Yes (Other)
  Sender: FDA-Public Use
  Company Number: PHHY2014AU073688

PATIENT
  Sex: Male
  Weight: 89.9 kg

DRUGS (3)
  1. CLOZARIL [Suspect]
     Indication: PSYCHOTIC DISORDER
     Dosage: 500 MG, DAILY
     Route: 048
     Dates: start: 20131230, end: 20140516
  2. MIRTAZAPINE [Concomitant]
     Indication: DEPRESSION
     Dosage: 30 MG, DAILY
     Route: 048
  3. PANTOPRAZOLE [Concomitant]
     Indication: DYSPEPSIA
     Dosage: 40 MG, DAILY
     Route: 048

REACTIONS (3)
  - Erectile dysfunction [Unknown]
  - Sedation [Unknown]
  - Salivary hypersecretion [Unknown]
